FAERS Safety Report 7183566-0 (Version None)
Quarter: 2010Q4

REPORT INFORMATION
  Report Type: 
  Country: None (occurrence: None)
  Receive Date: 20101222
  Receipt Date: 20101211
  Transmission Date: 20110411
  Serious: Yes (Other)
  Sender: FDA-Public Use
  Company Number: US-JNJCH-2010028717

PATIENT
  Sex: Male

DRUGS (1)
  1. EXTRA STRENGTH ROLAIDS SOFTCHEWS WILD CHERRY [Suspect]
     Indication: GASTROOESOPHAGEAL REFLUX DISEASE
     Dosage: TEXT:ONE TABLET ONCE EVERY FOUR TO FIVE DAYS
     Route: 048
     Dates: start: 20070101, end: 20101208

REACTIONS (3)
  - HAEMATOCHEZIA [None]
  - OFF LABEL USE [None]
  - PRODUCT QUALITY ISSUE [None]
